FAERS Safety Report 5588906-1 (Version None)
Quarter: 2008Q1

REPORT INFORMATION
  Report Type: 
  Country: None (occurrence: None)
  Receive Date: 20080111
  Receipt Date: 20080102
  Transmission Date: 20080703
  Serious: Yes (Hospitalization)
  Sender: FDA-Public Use
  Company Number: US-JNJFOC-20080102025

PATIENT
  Sex: Female
  Weight: 62.6 kg

DRUGS (26)
  1. LEVAQUIN [Suspect]
     Indication: PYREXIA
     Route: 042
  2. LEVAQUIN [Suspect]
     Route: 048
  3. CELLCEPT [Concomitant]
     Route: 065
  4. TACROLIMUS [Concomitant]
     Route: 065
  5. PREDNISONE TAB [Concomitant]
     Route: 065
  6. ACYCLOVIR [Concomitant]
     Route: 065
  7. NORVASC [Concomitant]
     Route: 065
  8. OSCAL [Concomitant]
     Route: 065
  9. COLACE [Concomitant]
     Route: 065
  10. INSULIN SS [Concomitant]
     Route: 065
  11. INSULIN SS [Concomitant]
     Route: 065
  12. INSULIN SS [Concomitant]
     Route: 065
  13. INSULIN SS [Concomitant]
     Route: 065
  14. MAGNESIUM CHLORIDE [Concomitant]
     Route: 065
  15. METOPROLOL [Concomitant]
     Route: 065
  16. MULTI-VITAMIN [Concomitant]
     Route: 065
  17. NYSTATIN [Concomitant]
     Route: 065
  18. PROGRAF [Concomitant]
     Route: 065
  19. ACIPHEX [Concomitant]
     Route: 065
  20. ASPIRIN [Concomitant]
     Route: 065
  21. MAGNESIUM OXIDE [Concomitant]
     Route: 065
  22. ACTIGALL [Concomitant]
     Route: 065
  23. KLONOPIN [Concomitant]
     Route: 065
  24. BACTRIM [Concomitant]
     Route: 065
  25. PEG-INTRON [Concomitant]
     Indication: HEPATITIS C
     Route: 065
  26. REBETOL [Concomitant]
     Indication: HEPATITIS C
     Route: 065

REACTIONS (5)
  - ANAEMIA [None]
  - DIARRHOEA [None]
  - HEADACHE [None]
  - PLEURAL EFFUSION [None]
  - SINUSITIS [None]
